FAERS Safety Report 16699280 (Version 1)
Quarter: 2019Q3

REPORT INFORMATION
  Report Type: Spontaneous
  Country: AR (occurrence: AR)
  Receive Date: 20190813
  Receipt Date: 20190813
  Transmission Date: 20191004
  Serious: Yes (Other)
  Sender: FDA-Public Use
  Company Number: PHHY2019AR170386

PATIENT
  Sex: Female

DRUGS (4)
  1. TRILEPTAL [Suspect]
     Active Substance: OXCARBAZEPINE
     Dosage: 600 MG, TID
     Route: 065
  2. TRILEPTAL [Suspect]
     Active Substance: OXCARBAZEPINE
     Indication: SEIZURE
     Dosage: 300 MG, QID
     Route: 065
     Dates: start: 199805
  3. TRILEPTAL [Suspect]
     Active Substance: OXCARBAZEPINE
     Indication: EPILEPSY
     Dosage: 600 MG, TID
     Route: 065
  4. LAMICTAL [Concomitant]
     Active Substance: LAMOTRIGINE
     Indication: PRODUCT USED FOR UNKNOWN INDICATION
     Dosage: 100 MG, QD (? AT MORNINGS AND ? AT NIGHT)
     Route: 065

REACTIONS (16)
  - Nasal turbinate abnormality [Unknown]
  - Hyperventilation [Unknown]
  - Epilepsy [Unknown]
  - Tachycardia [Unknown]
  - Coeliac disease [Unknown]
  - Hypoaesthesia [Unknown]
  - Dyspnoea [Unknown]
  - Vertigo [Unknown]
  - Headache [Unknown]
  - Asthma [Unknown]
  - Feeling abnormal [Unknown]
  - Respiration abnormal [Unknown]
  - Tremor [Unknown]
  - Nervousness [Unknown]
  - Brain neoplasm [Unknown]
  - Seizure [Unknown]

NARRATIVE: CASE EVENT DATE: 2012
